FAERS Safety Report 10009813 (Version 3)
Quarter: 2014Q2

REPORT INFORMATION
  Report Type: Spontaneous
  Country: US (occurrence: US)
  Receive Date: 20140312
  Receipt Date: 20140409
  Transmission Date: 20141212
  Serious: Yes (Hospitalization)
  Sender: FDA-Public Use
  Company Number: US-INCYTE CORPORATION-2012IN002690

PATIENT
  Age: 74 Year
  Sex: Male
  Weight: 76.64 kg

DRUGS (13)
  1. JAKAFI [Suspect]
     Indication: MYELOFIBROSIS
     Dosage: NOT SPECIFIED
     Route: 048
  2. JAKAFI [Suspect]
     Dosage: 20 MG, MONDAY, WEDNESDAY AND FRIDAY AFTER DIALYSIS
     Route: 048
  3. JAKAFI [Suspect]
     Dosage: 25 MG ON DAYS OF DIALYSIS
     Route: 048
  4. TAMSULOSIN [Concomitant]
  5. FINASTERIDE [Concomitant]
  6. ROPINIROLE [Concomitant]
  7. PANTOPRAZOLE [Concomitant]
  8. DRONABINOL [Concomitant]
  9. VITAMIN D [Concomitant]
  10. SYMMETREL [Concomitant]
  11. ZOLOFT [Concomitant]
  12. PREDNISONE [Concomitant]
  13. FLUTICASONE [Concomitant]

REACTIONS (8)
  - Dyspnoea [Recovering/Resolving]
  - Malaise [Not Recovered/Not Resolved]
  - Nausea [Not Recovered/Not Resolved]
  - Influenza like illness [Not Recovered/Not Resolved]
  - Chills [Not Recovered/Not Resolved]
  - Pain [Not Recovered/Not Resolved]
  - Hyperhidrosis [Not Recovered/Not Resolved]
  - Pyrexia [Not Recovered/Not Resolved]
